FAERS Safety Report 4450315-6 (Version None)
Quarter: 2004Q3

REPORT INFORMATION
  Report Type: 
  Country: None (occurrence: None)
  Receive Date: 20040914
  Receipt Date: 20040906
  Transmission Date: 20050211
  Serious: Yes (Life-Threatening, Other)
  Sender: FDA-Public Use
  Company Number: 239147

PATIENT
  Sex: Male
  Weight: 3.2 kg

DRUGS (3)
  1. ACTRAPID? PENFILL? HM(GE) 3 ML (INSULIN HUMAN) SOLUTION FOR INJECTION, [Suspect]
     Indication: DIABETES MELLITUS
     Dosage: SEE IMAGE
     Route: 015
     Dates: start: 20030625
  2. ACTRAPID? PENFILL? HM(GE) 3 ML (INSULIN HUMAN) SOLUTION FOR INJECTION, [Suspect]
     Indication: DIABETES MELLITUS
     Dosage: SEE IMAGE
     Route: 015
     Dates: start: 20040902
  3. PROTAPHANE FLEX PEN (INSULIN HUMAN) [Concomitant]

REACTIONS (6)
  - APGAR SCORE LOW [None]
  - BRADYCARDIA FOETAL [None]
  - CAESAREAN SECTION [None]
  - DRUG EXPOSURE DURING PREGNANCY [None]
  - HYPOGLYCAEMIA NEONATAL [None]
  - PREMATURE BABY [None]
